FAERS Safety Report 4844934-2 (Version None)
Quarter: 2005Q4

REPORT INFORMATION
  Report Type: 
  Country: None (occurrence: None)
  Receive Date: 20051205
  Receipt Date: 20051128
  Transmission Date: 20060501
  Serious: Yes (Hospitalization)
  Sender: FDA-Public Use
  Company Number: US-BRISTOL-MYERS SQUIBB COMPANY-13196266

PATIENT
  Age: 70 Year
  Sex: Male

DRUGS (6)
  1. COUMADIN [Suspect]
     Indication: HEART VALVE REPLACEMENT
     Dosage: 8.5 MG ALTERNATING WITH 9 MG DAILY
     Dates: start: 20030701
  2. ZOLOFT [Concomitant]
  3. TOPROL-XL [Concomitant]
  4. LIPITOR [Concomitant]
  5. FLOMAX [Concomitant]
  6. AMOXICILLIN [Concomitant]
     Indication: DENTAL CLEANING

REACTIONS (1)
  - INFARCTION [None]
